FAERS Safety Report 7430738-3 (Version None)
Quarter: 2011Q2

REPORT INFORMATION
  Report Type: 
  Country: None (occurrence: None)
  Receive Date: 20110421
  Receipt Date: 20110412
  Transmission Date: 20111010
  Serious: Yes (Hospitalization)
  Sender: FDA-Public Use
  Company Number: CA-US-EMD SERONO, INC.-7015351

PATIENT
  Sex: Female

DRUGS (4)
  1. ALTACE [Concomitant]
  2. REBIF [Suspect]
     Indication: RELAPSING-REMITTING MULTIPLE SCLEROSIS
     Route: 058
     Dates: start: 20100728, end: 20101012
  3. COUMADIN [Concomitant]
     Indication: ANTIPHOSPHOLIPID SYNDROME
  4. MANY OTHER MEDICATIONS [Concomitant]

REACTIONS (14)
  - ARTHRALGIA [None]
  - OEDEMA PERIPHERAL [None]
  - MALAISE [None]
  - UNEVALUABLE EVENT [None]
  - INJECTION SITE HAEMATOMA [None]
  - MEMORY IMPAIRMENT [None]
  - INJECTION SITE ERYTHEMA [None]
  - COGNITIVE DISORDER [None]
  - RHABDOMYOLYSIS [None]
  - HYPERHIDROSIS [None]
  - HYPOKINESIA [None]
  - ASPARTATE AMINOTRANSFERASE INCREASED [None]
  - HEPATIC ENZYME INCREASED [None]
  - MYOSITIS [None]
